FAERS Safety Report 8443724-1 (Version None)
Quarter: 2012Q2

REPORT INFORMATION
  Report Type: 
  Country: None (occurrence: None)
  Receive Date: 20120618
  Receipt Date: 20120608
  Transmission Date: 20120825
  Serious: No
  Sender: FDA-Public Use
  Company Number: FR-ELI_LILLY_AND_COMPANY-FR201206004150

PATIENT
  Age: 45 Year
  Sex: Female

DRUGS (3)
  1. CYMBALTA [Suspect]
     Dosage: 60 MG, QD
     Dates: start: 20120601
  2. CYMBALTA [Suspect]
     Dosage: 30 MG, QD
     Dates: start: 20120601
  3. CYMBALTA [Suspect]
     Dosage: 60 MG, UNK
     Dates: end: 20120601

REACTIONS (9)
  - HAEMATURIA [None]
  - INSOMNIA [None]
  - ASTHENIA [None]
  - WEIGHT DECREASED [None]
  - HEPATIC PAIN [None]
  - DECREASED APPETITE [None]
  - DEPRESSED MOOD [None]
  - VOMITING [None]
  - OFF LABEL USE [None]
